FAERS Safety Report 20011949 (Version 1)
Quarter: 2021Q4

REPORT INFORMATION
  Report Type: Spontaneous
  Country: FR (occurrence: FR)
  Receive Date: 20211028
  Receipt Date: 20211028
  Transmission Date: 20220303
  Serious: Yes (Hospitalization, Other)
  Sender: FDA-Public Use
  Company Number: None

PATIENT
  Age: 45 Year
  Sex: Male
  Weight: 58 kg

DRUGS (3)
  1. METRONIDAZOLE [Suspect]
     Active Substance: METRONIDAZOLE
     Indication: Peritonitis
     Dosage: 500 MG 3X/DAY
     Route: 042
     Dates: start: 20210901, end: 20210905
  2. CLARITHROMYCIN [Suspect]
     Active Substance: CLARITHROMYCIN
     Indication: Peritonitis
     Dosage: 500MG 2X/DAY
     Route: 042
     Dates: start: 20210901, end: 20210905
  3. AMOXICILLIN [Suspect]
     Active Substance: AMOXICILLIN
     Indication: Peritonitis
     Dosage: 1G 3X/DAY
     Route: 042
     Dates: start: 20210901, end: 20210905

REACTIONS (1)
  - Hypersensitivity pneumonitis [Recovering/Resolving]

NARRATIVE: CASE EVENT DATE: 20210903
